FAERS Safety Report 12522384 (Version 1)
Quarter: 2016Q3

REPORT INFORMATION
  Report Type: Spontaneous
  Country: US (occurrence: US)
  Receive Date: 20160701
  Receipt Date: 20160701
  Transmission Date: 20161109
  Serious: No
  Sender: FDA-Public Use
  Company Number: GXBR2015US002710

PATIENT
  Age: 82 Year
  Sex: Female
  Weight: 68.48 kg

DRUGS (2)
  1. ENOXAPARIN SODIUM. [Suspect]
     Active Substance: ENOXAPARIN SODIUM
     Indication: THROMBOSIS
     Dosage: 80 MG, QD
     Route: 065
     Dates: start: 20151203
  2. WARFARIN [Concomitant]
     Active Substance: WARFARIN
     Dosage: UNK DF, UNK

REACTIONS (1)
  - Injection site haemorrhage [Recovered/Resolved]

NARRATIVE: CASE EVENT DATE: 20151208
